FAERS Safety Report 16896810 (Version 3)
Quarter: 2020Q1

REPORT INFORMATION
  Report Type: Report from Study
  Country: None (occurrence: DE)
  Receive Date: 20191008
  Receipt Date: 20200212
  Transmission Date: 20200409
  Serious: Yes (Hospitalization)
  Sender: FDA-Public Use
  Company Number: DE-ABBVIE-19K-062-2951685-00

PATIENT
  Age: 76 Year
  Sex: Male

DRUGS (14)
  1. HUMIRA [Suspect]
     Active Substance: ADALIMUMAB
     Indication: PRODUCT USED FOR UNKNOWN INDICATION
     Route: 058
     Dates: start: 201506, end: 20190501
  2. DEKRISTOL [Concomitant]
     Active Substance: CHOLECALCIFEROL
     Indication: PRODUCT USED FOR UNKNOWN INDICATION
  3. PANTOPRAZOL [Concomitant]
     Active Substance: PANTOPRAZOLE SODIUM
     Indication: PRODUCT USED FOR UNKNOWN INDICATION
  4. BISOPROLOL [Concomitant]
     Active Substance: BISOPROLOL
     Indication: PRODUCT USED FOR UNKNOWN INDICATION
  5. AMLODIPIN [Concomitant]
     Active Substance: AMLODIPINE BESYLATE
     Indication: PRODUCT USED FOR UNKNOWN INDICATION
  6. ATORVASTATIN [Concomitant]
     Active Substance: ATORVASTATIN
     Indication: PRODUCT USED FOR UNKNOWN INDICATION
  7. ELIQUIS [Concomitant]
     Active Substance: APIXABAN
     Indication: PRODUCT USED FOR UNKNOWN INDICATION
  8. METHOTREXATE. [Concomitant]
     Active Substance: METHOTREXATE
  9. LEFLUNOMIDE. [Concomitant]
     Active Substance: LEFLUNOMIDE
     Indication: PRODUCT USED FOR UNKNOWN INDICATION
  10. METFORMIN [Concomitant]
     Active Substance: METFORMIN HYDROCHLORIDE
     Indication: PRODUCT USED FOR UNKNOWN INDICATION
  11. TELMISARTAN/HYDROCHLOROTHIAZID ACCORD [Concomitant]
     Indication: PRODUCT USED FOR UNKNOWN INDICATION
  12. VITAMIN B12 [Concomitant]
     Active Substance: CYANOCOBALAMIN
     Indication: PRODUCT USED FOR UNKNOWN INDICATION
  13. PREDNISOLON [Concomitant]
     Active Substance: PREDNISOLONE
     Indication: PRODUCT USED FOR UNKNOWN INDICATION
  14. METHOTREXATE. [Concomitant]
     Active Substance: METHOTREXATE
     Indication: PRODUCT USED FOR UNKNOWN INDICATION

REACTIONS (21)
  - Haemorrhoidal haemorrhage [Recovered/Resolved]
  - Enterobacter infection [Unknown]
  - Systemic inflammatory response syndrome [Recovered/Resolved]
  - Gastrointestinal haemorrhage [Recovered/Resolved]
  - Anaemia vitamin B12 deficiency [Unknown]
  - Oesophageal candidiasis [Unknown]
  - Colon adenoma [Unknown]
  - Lumbar vertebral fracture [Unknown]
  - Bronchitis chronic [Unknown]
  - Morganella infection [Unknown]
  - Pyrexia [Recovered/Resolved]
  - Anaemia megaloblastic [Unknown]
  - Hiatus hernia [Unknown]
  - Acute kidney injury [Recovered/Resolved]
  - Pneumonitis [Recovered/Resolved]
  - Decreased appetite [Unknown]
  - Weight decreased [Unknown]
  - Osteoporosis [Unknown]
  - Lung infiltration [Unknown]
  - Pneumonia [Unknown]
  - Gastritis [Unknown]

NARRATIVE: CASE EVENT DATE: 20190409
